FAERS Safety Report 8681708 (Version 2)
Quarter: 2012Q4

REPORT INFORMATION
  Report Type: 
  Country: DK (occurrence: DK)
  Receive Date: 20120725
  Receipt Date: 20120927
  Transmission Date: 20130627
  Serious: Yes (Other)
  Sender: FDA-Public Use
  Company Number: DK-ELI_LILLY_AND_COMPANY-DK201207006317

PATIENT
  Sex: Female

DRUGS (15)
  1. ZYPREXA [Suspect]
     Indication: MENTAL DISORDER
     Dosage: 7.5 mg, qd
     Dates: start: 20110601
  2. ZYPREXA [Suspect]
     Dosage: 5 mg, qd
  3. ZYPREXA [Suspect]
     Dosage: 10 mg, qd
     Dates: start: 20110601
  4. ZYPREXA [Suspect]
     Dosage: 17.5 mg, qd
     Dates: start: 20110815
  5. DELEPSINE - SLOW RELEASE [Concomitant]
     Indication: MOOD SWINGS
     Dosage: 600 mg, each morning
     Dates: start: 20091210
  6. DELEPSINE - SLOW RELEASE [Concomitant]
     Dosage: 1200 mg, each evening
     Dates: start: 20091012
  7. SERDOLECT [Concomitant]
     Indication: MENTAL DISORDER
     Dosage: 12 mg, UNK
     Dates: start: 20091211
  8. SERDOLECT [Concomitant]
     Dosage: 4 mg, UNK
     Dates: start: 20110929
  9. ALOPAM [Concomitant]
     Indication: SEDATIVE THERAPY
     Dosage: 15 mg, UNK
     Dates: start: 20110704
  10. SIMVASTATIN [Concomitant]
     Indication: HYPERCHOLESTEROLAEMIA
     Dosage: 40 mg, UNK
     Dates: start: 20100809
  11. ANTABUS [Concomitant]
     Indication: ALCOHOL ABUSE
     Dosage: 100 mg, qd
     Dates: start: 20100810
  12. PANTOPRAZOL [Concomitant]
     Indication: GASTRIC PH DECREASED
     Dosage: 40 mg, UNK
     Dates: start: 20120511
  13. PINEX [Concomitant]
     Indication: PAIN
     Dosage: 500 mg, prn
  14. LYSANTIN [Concomitant]
  15. OXEPAM [Suspect]

REACTIONS (17)
  - Cardiac disorder [Recovered/Resolved]
  - Weight increased [Not Recovered/Not Resolved]
  - Muscle rigidity [Not Recovered/Not Resolved]
  - Dyskinesia [Recovered/Resolved]
  - Muscular weakness [Recovered/Resolved]
  - Dizziness [Unknown]
  - Hypersomnia [Recovered/Resolved]
  - Hepatic enzyme increased [Recovered/Resolved]
  - Blood cholesterol increased [Recovered/Resolved]
  - Fluid retention [Unknown]
  - Dyspnoea [Unknown]
  - Palpitations [Unknown]
  - Hypotonia [Unknown]
  - Quality of life decreased [Unknown]
  - Anger [Recovered/Resolved]
  - Asthenopia [Not Recovered/Not Resolved]
  - Fall [Unknown]
